FAERS Safety Report 24226691 (Version 1)
Quarter: 2024Q3

REPORT INFORMATION
  Report Type: Spontaneous
  Country: US (occurrence: None)
  Receive Date: 20240819
  Receipt Date: 20240819
  Transmission Date: 20241016
  Serious: Yes (Other)
  Sender: Public
  Company Number: None

PATIENT
  Age: 71 Year
  Sex: Female
  Weight: 111.6 kg

DRUGS (21)
  1. JARDIANCE [Suspect]
     Active Substance: EMPAGLIFLOZIN
     Indication: Type 2 diabetes mellitus
     Dosage: OTHER QUANTITY : 1 TABLET(S);?FREQUENCY : DAILY;?
     Route: 048
     Dates: start: 20240815, end: 20240817
  2. BUPROPION [Concomitant]
     Active Substance: BUPROPION
  3. DULOXETINE [Concomitant]
     Active Substance: DULOXETINE
  4. GABAPENTIN [Concomitant]
     Active Substance: GABAPENTIN
  5. LEVOTHYROXINE [Concomitant]
     Active Substance: LEVOTHYROXINE\LEVOTHYROXINE SODIUM
  6. MELOXICAM [Concomitant]
     Active Substance: MELOXICAM
  7. METFORMIN [Concomitant]
     Active Substance: METFORMIN HYDROCHLORIDE
  8. OMEPRAZOLE [Concomitant]
     Active Substance: OMEPRAZOLE
  9. PROLIA [Concomitant]
     Active Substance: DENOSUMAB
  10. ROSUVASTATIN [Concomitant]
     Active Substance: ROSUVASTATIN\ROSUVASTATIN CALCIUM
  11. VITAMIN D2 [Concomitant]
     Active Substance: ERGOCALCIFEROL
  12. C Pap machine [Concomitant]
  13. CALCIUM CARBONATE\CHOLECALCIFEROL [Concomitant]
     Active Substance: CALCIUM CARBONATE\CHOLECALCIFEROL
  14. VITAMIN D3 [Concomitant]
     Active Substance: CHOLECALCIFEROL
  15. ASPIRIN [Concomitant]
     Active Substance: ASPIRIN
  16. Super B Complex with Electrolytes [Concomitant]
  17. Mature multi vitamin + mineral [Concomitant]
  18. BIOTIN [Concomitant]
     Active Substance: BIOTIN
  19. VITAMIN C [Concomitant]
     Active Substance: ASCORBIC ACID
  20. HERBALS\TURMERIC [Concomitant]
     Active Substance: HERBALS\TURMERIC
  21. DIETARY SUPPLEMENT [Concomitant]
     Active Substance: DIETARY SUPPLEMENT

REACTIONS (1)
  - Urticaria [None]

NARRATIVE: CASE EVENT DATE: 20240816
